FAERS Safety Report 10677713 (Version 4)
Quarter: 2015Q3

REPORT INFORMATION
  Report Type: Spontaneous
  Country: IT (occurrence: IT)
  Receive Date: 20141229
  Receipt Date: 20150813
  Transmission Date: 20151125
  Serious: Yes (Hospitalization)
  Sender: FDA-Public Use
  Company Number: IT-ROCHE-1513923

PATIENT
  Age: 48 Year
  Sex: Male

DRUGS (5)
  1. HALDOL DECANOATE [Concomitant]
     Active Substance: HALOPERIDOL DECANOATE
     Dosage: 50 MG/ML SOLUTION FOR INJECTION?3 X 1 ML VIALS
     Route: 030
  2. RIVOTRIL [Suspect]
     Active Substance: CLONAZEPAM
     Indication: DRUG ABUSE
     Dosage: 2 MG TABLETS 20 TABLETS
     Route: 048
     Dates: start: 20141219, end: 20141219
  3. CLOPIXOL [Concomitant]
     Active Substance: ZUCLOPENTHIXOL ACETATE
     Dosage: 200 MG/ML PROLONGED-RELEASE SOLUTION FOR INJECTION
     Route: 030
  4. RIVOTRIL [Suspect]
     Active Substance: CLONAZEPAM
     Dosage: 2 MG TABLETS 20 TABLETS
     Route: 048
     Dates: start: 20150328, end: 20150328
  5. METHADONE HYDROCHLORIDE. [Concomitant]
     Active Substance: METHADONE HYDROCHLORIDE

REACTIONS (7)
  - Mental disorder [Recovered/Resolved]
  - Bradykinesia [Recovered/Resolved]
  - Drug abuse [Unknown]
  - Agitation [Recovered/Resolved]
  - Psychomotor hyperactivity [Recovering/Resolving]
  - Sopor [Recovering/Resolving]
  - Bradyphrenia [Recovered/Resolved]

NARRATIVE: CASE EVENT DATE: 20141219
